FAERS Safety Report 8473898-8 (Version None)
Quarter: 2012Q2

REPORT INFORMATION
  Report Type: 
  Country: None (occurrence: None)
  Receive Date: 20120628
  Receipt Date: 20120521
  Transmission Date: 20120825
  Serious: Yes (Death)
  Sender: FDA-Public Use
  Company Number: US-MYLANLABS-2012S1001509

PATIENT
  Age: 80 Year
  Sex: Male

DRUGS (11)
  1. METFORMIN HCL [Concomitant]
  2. TOLTERODINE TARTRATE [Concomitant]
  3. NEURONTIN [Concomitant]
  4. SIMVASTATIN [Concomitant]
  5. VIBRAMYCIN [Concomitant]
  6. TENORMIN [Concomitant]
  7. SINEMET [Concomitant]
  8. CLOZAPINE [Suspect]
     Indication: PSYCHOTIC DISORDER
     Route: 048
     Dates: end: 20120101
  9. MELOXICAM [Concomitant]
  10. ISORDIL [Concomitant]
  11. TERAZOSIN HCL [Concomitant]

REACTIONS (3)
  - DEATH [None]
  - RENAL FAILURE [None]
  - CARDIAC FAILURE CONGESTIVE [None]
